FAERS Safety Report 9998876 (Version 2)
Quarter: 2014Q1

REPORT INFORMATION
  Report Type: Report from Study
  Country: US (occurrence: US)
  Receive Date: 20140312
  Receipt Date: 20140312
  Transmission Date: 20141002
  Serious: No
  Sender: FDA-Public Use
  Company Number: US-ROCHE-GNE243756

PATIENT
  Sex: Female
  Weight: 93.2 kg

DRUGS (15)
  1. OMALIZUMAB [Suspect]
     Indication: ASTHMA
     Dosage: 300 MG, Q4W
     Route: 058
     Dates: start: 20051111, end: 20060215
  2. XOPENEX HFA [Concomitant]
     Indication: ASTHMA
     Route: 065
     Dates: start: 20010404
  3. ALBUTEROL [Concomitant]
     Indication: ASTHMA
     Route: 065
  4. ADVAIR DISKUS [Concomitant]
     Indication: ASTHMA
     Route: 065
     Dates: start: 20011021
  5. SINGULAIR [Concomitant]
     Indication: RHINITIS ALLERGIC
     Dosage: STARTED PRIOR TO 2001
     Route: 048
  6. SINGULAIR [Concomitant]
     Indication: ASTHMA
  7. ZYRTEC [Concomitant]
     Indication: RHINITIS ALLERGIC
     Dosage: START DATE: PRIOR TO 2000
     Route: 048
  8. KETEK (UNITED STATES) [Concomitant]
     Indication: SINUSITIS
     Route: 048
     Dates: start: 20051129, end: 20121204
  9. AMOXICILLIN [Concomitant]
     Route: 065
     Dates: start: 20060415, end: 20060425
  10. RHINOCORT AQUA [Concomitant]
     Indication: RHINITIS ALLERGIC
     Route: 045
     Dates: start: 20060415, end: 20060425
  11. ZANTAC [Concomitant]
     Indication: GASTROOESOPHAGEAL REFLUX DISEASE
     Route: 065
     Dates: start: 20060410, end: 20060815
  12. ZANTAC [Concomitant]
     Route: 048
     Dates: start: 20060815, end: 20061018
  13. ZITHROMAX [Concomitant]
     Indication: RESPIRATORY TRACT INFECTION
     Route: 048
     Dates: start: 20060613, end: 20060618
  14. PREDNISONE [Concomitant]
     Indication: ASTHMA
     Route: 048
     Dates: start: 20060613, end: 20060623
  15. XOPENEX HFA [Concomitant]
     Indication: ASTHMA
     Route: 065
     Dates: start: 20060613, end: 20060618

REACTIONS (1)
  - Exposure during pregnancy [Unknown]
